FAERS Safety Report 4709730-5 (Version None)
Quarter: 2005Q2

REPORT INFORMATION
  Report Type: 
  Country: None (occurrence: None)
  Receive Date: 20050629
  Receipt Date: 20050518
  Transmission Date: 20051028
  Serious: No
  Sender: FDA-Public Use
  Company Number: 05P-163-0300910-00

PATIENT
  Age: 62 Year

DRUGS (3)
  1. HUMIRA [Suspect]
     Dosage: 40 MG, SUBCUTANEOUS
     Route: 058
     Dates: start: 20040501
  2. METHOTREXATE [Concomitant]
  3. SULFASALAZINE [Concomitant]

REACTIONS (1)
  - INFECTION [None]
